FAERS Safety Report 6393180-2 (Version None)
Quarter: 2009Q4

REPORT INFORMATION
  Report Type: 
  Country: None (occurrence: None)
  Receive Date: 20091008
  Receipt Date: 20090929
  Transmission Date: 20100525
  Serious: Yes (Hospitalization, Other)
  Sender: FDA-Public Use
  Company Number: JP-BRISTOL-MYERS SQUIBB COMPANY-14389019

PATIENT
  Age: 59 Year
  Sex: Female
  Weight: 39 kg

DRUGS (19)
  1. ABILIFY [Suspect]
     Indication: SCHIZOPHRENIA
     Dosage: 02SEP-05DEC08:12MG/QD;06DEC2008 DOSE INCREASED TO 24MG/DAY AND 17JAN2009 30MG/DAY
     Route: 048
     Dates: start: 20080902
  2. ZYPREXA [Suspect]
     Indication: SCHIZOPHRENIA
     Dosage: FORMULATION - TABS
     Route: 048
     Dates: start: 20080101, end: 20080925
  3. DEPAS [Concomitant]
     Dates: start: 20081118, end: 20090404
  4. FLUITRAN [Concomitant]
     Dosage: FORMULATION -TABLETS
     Dates: start: 20081118
  5. DIOVAN [Concomitant]
     Dosage: FORMULATION -TABLETS
     Dates: start: 20081118
  6. NORVASC [Concomitant]
     Dosage: FORMULATION -TABLET
  7. ALFACALCIDOL [Concomitant]
     Dosage: FORM:TABLET
     Dates: start: 20081118, end: 20090404
  8. TEGRETOL [Concomitant]
     Dates: start: 20081118
  9. BROTIZOLAM [Concomitant]
     Dosage: FORM:TABLET
     Dates: start: 20081118
  10. ZOPICOOL [Concomitant]
     Dosage: FORMULATION -TABLET
  11. HIBERNA [Concomitant]
  12. COLONEL [Concomitant]
     Dates: end: 20081116
  13. MAGNESIUM OXIDE [Concomitant]
     Dates: end: 20081116
  14. RHUBARB + SALICYLIC ACID [Concomitant]
     Dosage: FORMULATION - POWDER
     Dates: end: 20081116
  15. GASCON [Concomitant]
     Dates: end: 20081116
  16. BENZALIN [Concomitant]
     Dates: end: 20081116
  17. SODIUM PICOSULFATE [Concomitant]
     Dosage: FORM:LIQUID
     Dates: end: 20081010
  18. DORAL [Concomitant]
     Dosage: FORM:TABLET
     Dates: start: 20090405
  19. SLOW-K [Concomitant]
     Dates: start: 20081118

REACTIONS (3)
  - HYPOKALAEMIA [None]
  - HYPONATRAEMIA [None]
  - ILEUS [None]
